FAERS Safety Report 6431792-8 (Version None)
Quarter: 2009Q4

REPORT INFORMATION
  Report Type: 
  Country: None (occurrence: None)
  Receive Date: 20091104
  Receipt Date: 20091026
  Transmission Date: 20100525
  Serious: Yes (Hospitalization)
  Sender: FDA-Public Use
  Company Number: 417457

PATIENT
  Age: 10 Hour
  Sex: Male
  Weight: 2.43 kg

DRUGS (6)
  1. THIOPENTAL SODIUM [Suspect]
     Indication: ANAESTHETIC PREMEDICATION
     Dosage: 3 MG/KG, INTRAVENOUS
     Route: 042
  2. GLYCOPYRROLATE INJECTION, USP [Concomitant]
  3. SUCCINYLCHOLINE CHLORIDE [Concomitant]
  4. (REMIFENTANIL) [Concomitant]
  5. (OXYGEN) [Concomitant]
  6. RED BLOOD CELLS [Concomitant]

REACTIONS (6)
  - CEREBRAL ISCHAEMIA [None]
  - COMA [None]
  - HYPOTENSION [None]
  - HYPOTONIA [None]
  - OVERDOSE [None]
  - WRONG TECHNIQUE IN DRUG USAGE PROCESS [None]
